FAERS Safety Report 25874552 (Version 3)
Quarter: 2025Q4

REPORT INFORMATION
  Report Type: Spontaneous
  Country: US (occurrence: US)
  Receive Date: 20251002
  Receipt Date: 20251010
  Transmission Date: 20260118
  Serious: Yes (Other)
  Sender: APELLIS PHARMACEUTICALS
  Company Number: US-APELLIS-2025-APL-0001840

PATIENT

DRUGS (19)
  1. SYFOVRE [Suspect]
     Active Substance: PEGCETACOPLAN
     Indication: Product used for unknown indication
     Dosage: OD
     Route: 031
     Dates: start: 20230516
  2. SYFOVRE [Suspect]
     Active Substance: PEGCETACOPLAN
     Dosage: OD
     Route: 031
     Dates: start: 20230720
  3. SYFOVRE [Suspect]
     Active Substance: PEGCETACOPLAN
     Dosage: OD
     Route: 031
     Dates: start: 20230914
  4. SYFOVRE [Suspect]
     Active Substance: PEGCETACOPLAN
     Dosage: OD
     Route: 031
     Dates: start: 20231109
  5. SYFOVRE [Suspect]
     Active Substance: PEGCETACOPLAN
     Dosage: OD
     Route: 031
     Dates: start: 20240118
  6. SYFOVRE [Suspect]
     Active Substance: PEGCETACOPLAN
     Dosage: OD
     Route: 031
     Dates: start: 20240314
  7. SYFOVRE [Suspect]
     Active Substance: PEGCETACOPLAN
     Dosage: OD
     Route: 031
     Dates: start: 20240509
  8. SYFOVRE [Suspect]
     Active Substance: PEGCETACOPLAN
     Dosage: OD
     Route: 031
     Dates: start: 20240718
  9. SYFOVRE [Suspect]
     Active Substance: PEGCETACOPLAN
     Dosage: OD
     Route: 031
     Dates: start: 20240912
  10. SYFOVRE [Suspect]
     Active Substance: PEGCETACOPLAN
     Dosage: OD
     Route: 031
     Dates: start: 20241107
  11. SYFOVRE [Suspect]
     Active Substance: PEGCETACOPLAN
     Dosage: OD
     Route: 031
     Dates: start: 20250116
  12. SYFOVRE [Suspect]
     Active Substance: PEGCETACOPLAN
     Dosage: OD
     Route: 031
     Dates: start: 20250313
  13. SYFOVRE [Suspect]
     Active Substance: PEGCETACOPLAN
     Dosage: OD
     Route: 031
     Dates: start: 20250508
  14. SYFOVRE [Suspect]
     Active Substance: PEGCETACOPLAN
     Dosage: OD
     Route: 031
     Dates: start: 20250717
  15. SYFOVRE [Suspect]
     Active Substance: PEGCETACOPLAN
     Dosage: OD
     Route: 031
     Dates: start: 20250925
  16. PAVBLU [Concomitant]
     Active Substance: AFLIBERCEPT-AYYH
     Indication: Product used for unknown indication
     Dosage: OD
     Dates: start: 20250213
  17. PAVBLU [Concomitant]
     Active Substance: AFLIBERCEPT-AYYH
     Dosage: OD
     Dates: start: 20250410
  18. PAVBLU [Concomitant]
     Active Substance: AFLIBERCEPT-AYYH
     Dosage: OD
     Dates: start: 20250605
  19. PAVBLU [Concomitant]
     Active Substance: AFLIBERCEPT-AYYH
     Dosage: OD
     Dates: start: 20250828

REACTIONS (2)
  - Endophthalmitis [Unknown]
  - Blindness [Unknown]

NARRATIVE: CASE EVENT DATE: 20250927
